FAERS Safety Report 10707976 (Version 1)
Quarter: 2015Q1

REPORT INFORMATION
  Report Type: Spontaneous
  Country: US (occurrence: US)
  Receive Date: 20150113
  Receipt Date: 20150113
  Transmission Date: 20150721
  Serious: Yes (Death)
  Sender: FDA-Public Use
  Company Number: US-PFIZER INC-2015007075

PATIENT
  Age: 42 Year
  Sex: Male

DRUGS (12)
  1. PROPANOLOL HCL [Suspect]
     Active Substance: PROPRANOLOL HYDROCHLORIDE
  2. LITHIUM [Suspect]
     Active Substance: LITHIUM CARBONATE
  3. IBUPROFEN. [Suspect]
     Active Substance: IBUPROFEN
  4. LACTOBACILLUS ACIDOPHILUS [Suspect]
     Active Substance: LACTOBACILLUS ACIDOPHILUS
  5. ALPRAZOLAM. [Suspect]
     Active Substance: ALPRAZOLAM
  6. CLONAZEPAM. [Suspect]
     Active Substance: CLONAZEPAM
  7. METHADONE [Suspect]
     Active Substance: METHADONE HYDROCHLORIDE
  8. DIPHENHYDRAMINE [Suspect]
     Active Substance: DIPHENHYDRAMINE
  9. NAPROXEN. [Suspect]
     Active Substance: NAPROXEN
  10. PRAVASTATIN [Suspect]
     Active Substance: PRAVASTATIN\PRAVASTATIN SODIUM
  11. BUPRENORPHINE/NALOXONE [Suspect]
     Active Substance: BUPRENORPHINE\NALOXONE
     Route: 060
  12. MARIJUANA [Suspect]
     Active Substance: CANNABIS SATIVA SUBSP. INDICA TOP

REACTIONS (3)
  - Cardiac arrest [Fatal]
  - Death [Fatal]
  - Respiratory arrest [Fatal]

NARRATIVE: CASE EVENT DATE: 2013
